FAERS Safety Report 25451567 (Version 1)
Quarter: 2025Q2

REPORT INFORMATION
  Report Type: Spontaneous
  Country: US (occurrence: None)
  Receive Date: 20250617
  Receipt Date: 20250617
  Transmission Date: 20250716
  Serious: Yes (Other)
  Sender: FDA-CTU
  Company Number: None

PATIENT
  Age: 58 Year
  Sex: Female
  Weight: 58 kg

DRUGS (8)
  1. BIMZELX [Suspect]
     Active Substance: BIMEKIZUMAB-BKZX
     Indication: Psoriatic arthropathy
     Route: 060
     Dates: start: 20250304
  2. PREDNISONE [Concomitant]
     Active Substance: PREDNISONE
  3. GABAPENTIN [Concomitant]
     Active Substance: GABAPENTIN
  4. MTX 250mg [Concomitant]
  5. leucovorin 10mg [Concomitant]
  6. XTAMPZA [Concomitant]
     Active Substance: OXYCODONE
  7. CYMBALTA [Concomitant]
     Active Substance: DULOXETINE HYDROCHLORIDE
  8. BUPROPION [Concomitant]
     Active Substance: BUPROPION

REACTIONS (4)
  - Diarrhoea [None]
  - Oral candidiasis [None]
  - Vulvovaginal candidiasis [None]
  - Acne [None]

NARRATIVE: CASE EVENT DATE: 20250617
